FAERS Safety Report 17281129 (Version 2)
Quarter: 2023Q4

REPORT INFORMATION
  Report Type: Report from Study
  Country: CA (occurrence: CA)
  Receive Date: 20200117
  Receipt Date: 20231026
  Transmission Date: 20240110
  Serious: Yes (Hospitalization)
  Sender: FDA-Public Use
  Company Number: CA-002147023-NVSC2020CA005986

PATIENT
  Age: 64 Year
  Sex: Male

DRUGS (2)
  1. AIMOVIG [Suspect]
     Active Substance: ERENUMAB-AOOE
     Indication: Migraine
     Dosage: UNK
     Route: 065
     Dates: start: 20190320
  2. AIMOVIG [Suspect]
     Active Substance: ERENUMAB-AOOE
     Dosage: 140 MG, QMO
     Route: 058
     Dates: start: 20190411

REACTIONS (4)
  - Myocardial infarction [Recovering/Resolving]
  - Pain [Unknown]
  - Sleep disorder [Unknown]
  - Migraine [Unknown]

NARRATIVE: CASE EVENT DATE: 20191226
